FAERS Safety Report 17994968 (Version 1)
Quarter: 2020Q3

REPORT INFORMATION
  Report Type: Spontaneous
  Country: US (occurrence: US)
  Receive Date: 20200708
  Receipt Date: 20200708
  Transmission Date: 20201103
  Serious: Yes (Other)
  Sender: FDA-Public Use
  Company Number: US-PFIZER INC-2020260973

PATIENT
  Sex: Male

DRUGS (1)
  1. CHANTIX [Suspect]
     Active Substance: VARENICLINE TARTRATE
     Dosage: 1 PILL PER DAY (FOR THE DURATION OF THE FIRST BOX)

REACTIONS (3)
  - Bipolar disorder [Unknown]
  - Drug ineffective [Unknown]
  - Product prescribing error [Unknown]
